FAERS Safety Report 5627605-4 (Version None)
Quarter: 2008Q1

REPORT INFORMATION
  Report Type: 
  Country: None (occurrence: None)
  Receive Date: 20080215
  Receipt Date: 20080207
  Transmission Date: 20080703
  Serious: Yes (Hospitalization)
  Sender: FDA-Public Use
  Company Number: GB-JNJFOC-20071003776

PATIENT
  Sex: Female
  Weight: 60 kg

DRUGS (14)
  1. INFLIXIMAB [Suspect]
     Route: 042
  2. INFLIXIMAB [Suspect]
     Route: 042
  3. INFLIXIMAB [Suspect]
     Route: 042
  4. INFLIXIMAB [Suspect]
     Route: 042
  5. INFLIXIMAB [Suspect]
     Indication: RHEUMATOID ARTHRITIS
     Route: 042
  6. VITAMIN B-12 [Concomitant]
  7. METHOTREXATE [Concomitant]
  8. ASACOL [Concomitant]
  9. MAXALON [Concomitant]
  10. CYCLAZINE [Concomitant]
  11. FOLIC ACID [Concomitant]
  12. OMEPRAZOLE [Concomitant]
  13. ZOPICLONE [Concomitant]
  14. COCODAMOL [Concomitant]

REACTIONS (1)
  - LISTERIA SEPSIS [None]
